FAERS Safety Report 10440403 (Version 2)
Quarter: 2014Q3

REPORT INFORMATION
  Report Type: Report from Study
  Country: CA (occurrence: CA)
  Receive Date: 20140909
  Receipt Date: 20140909
  Transmission Date: 20150326
  Serious: Yes (Other)
  Sender: FDA-Public Use
  Company Number: CA-ROCHE-1144602

PATIENT
  Age: 50 Year
  Sex: Female
  Weight: 81.72 kg

DRUGS (13)
  1. DIPHENHYDRAMINE HCL [Concomitant]
     Active Substance: DIPHENHYDRAMINE HYDROCHLORIDE
     Route: 048
     Dates: start: 20111024, end: 20130906
  2. METHYLPREDNISOLONE [Concomitant]
     Active Substance: METHYLPREDNISOLONE
     Route: 042
     Dates: start: 20111024
  3. DILAUDID [Concomitant]
     Active Substance: HYDROMORPHONE HYDROCHLORIDE
  4. PREDNISONE. [Concomitant]
     Active Substance: PREDNISONE
     Route: 065
  5. ACETAMINOFEN [Concomitant]
     Active Substance: ACETAMINOPHEN
     Route: 048
     Dates: start: 20140401
  6. XANAX [Concomitant]
     Active Substance: ALPRAZOLAM
  7. ARAVA [Concomitant]
     Active Substance: LEFLUNOMIDE
  8. DIPHENHYDRAMINE HCL [Concomitant]
     Active Substance: DIPHENHYDRAMINE HYDROCHLORIDE
     Route: 048
     Dates: start: 20140401, end: 20140401
  9. IMOVANE [Concomitant]
     Active Substance: ZOPICLONE
  10. RITUXIMAB [Suspect]
     Active Substance: RITUXIMAB
     Indication: RHEUMATOID ARTHRITIS
     Dosage: LAST DOSE OF RITUXIMAB :01/APR/2014
     Route: 042
     Dates: start: 20111024
  11. SEROQUEL [Concomitant]
     Active Substance: QUETIAPINE FUMARATE
  12. CELEXA [Concomitant]
     Active Substance: CITALOPRAM HYDROBROMIDE
  13. ACETAMINOFEN [Concomitant]
     Active Substance: ACETAMINOPHEN
     Route: 048
     Dates: start: 20120927, end: 20121012

REACTIONS (5)
  - Urinary tract infection [Recovering/Resolving]
  - Bronchitis [Unknown]
  - Arthralgia [Unknown]
  - Sinusitis [Unknown]
  - Syncope [Unknown]

NARRATIVE: CASE EVENT DATE: 20121005
